FAERS Safety Report 8256642-9 (Version None)
Quarter: 2012Q2

REPORT INFORMATION
  Report Type: 
  Country: None (occurrence: None)
  Receive Date: 20120403
  Receipt Date: 20120330
  Transmission Date: 20120825
  Serious: Yes (Hospitalization)
  Sender: FDA-Public Use
  Company Number: US-MERCK-1109USA01758

PATIENT
  Age: 57 Year
  Sex: Female
  Weight: 70 kg

DRUGS (4)
  1. FOSAMAX [Suspect]
     Indication: OSTEOPOROSIS
     Route: 048
     Dates: start: 20000101, end: 20051201
  2. FOSAMAX PLUS D [Suspect]
     Indication: OSTEOPOROSIS
     Route: 048
     Dates: end: 20080401
  3. FOSAMAX [Suspect]
     Route: 048
     Dates: start: 20051201, end: 20080401
  4. ALENDRONATE SODIUM [Suspect]
     Indication: OSTEOPOROSIS
     Route: 048
     Dates: start: 20080401, end: 20100101

REACTIONS (26)
  - TOOTH DISORDER [None]
  - HAEMOGLOBIN DECREASED [None]
  - ALCOHOL ABUSE [None]
  - PNEUMONIA ASPIRATION [None]
  - ANKLE FRACTURE [None]
  - BLOOD CHOLESTEROL INCREASED [None]
  - ORAL HERPES [None]
  - OESTROGEN DEFICIENCY [None]
  - EYELID TUMOUR [None]
  - FALL [None]
  - DIVERTICULUM [None]
  - FEMUR FRACTURE [None]
  - TACHYCARDIA [None]
  - LOW TURNOVER OSTEOPATHY [None]
  - SEBORRHOEIC KERATOSIS [None]
  - MICTURITION URGENCY [None]
  - LIMB INJURY [None]
  - URETHRAL STENOSIS [None]
  - BREAST HYPERPLASIA [None]
  - PYREXIA [None]
  - COLONIC POLYP [None]
  - HEPATIC ENZYME INCREASED [None]
  - SKIN LESION [None]
  - OSTEOARTHRITIS [None]
  - UTERINE LEIOMYOMA [None]
  - HYPERLIPIDAEMIA [None]
